FAERS Safety Report 8479649-5 (Version None)
Quarter: 2012Q2

REPORT INFORMATION
  Report Type: 
  Country: None (occurrence: None)
  Receive Date: 20120629
  Receipt Date: 20120626
  Transmission Date: 20120825
  Serious: Yes (Death)
  Sender: FDA-Public Use
  Company Number: US-GILEAD-2012-0056252

PATIENT
  Sex: Female

DRUGS (3)
  1. LETAIRIS [Suspect]
     Indication: HEPATIC CIRRHOSIS
  2. LETAIRIS [Suspect]
     Indication: PORTOPULMONARY HYPERTENSION
     Dosage: 5 MG, UNK
     Route: 048
     Dates: start: 20120515, end: 20120606
  3. LETAIRIS [Suspect]
     Indication: HEPATITIS
     Dosage: 5 UNK, UNK
     Route: 048
     Dates: start: 20111029, end: 20111121

REACTIONS (2)
  - HEPATIC FAILURE [None]
  - RENAL FAILURE [None]
